FAERS Safety Report 18747121 (Version 1)
Quarter: 2021Q1

REPORT INFORMATION
  Report Type: Spontaneous
  Country: US (occurrence: US)
  Receive Date: 20210115
  Receipt Date: 20210115
  Transmission Date: 20210419
  Serious: Yes (Hospitalization, Other)
  Sender: FDA-Public Use
  Company Number: US-BIO PRODUCTS LABORATORY LTD-2105381

PATIENT
  Age: 62 Year
  Sex: Female

DRUGS (5)
  1. SIROLIMUS. [Concomitant]
     Active Substance: SIROLIMUS
  2. MYCOPHENOLIC ACID. [Concomitant]
     Active Substance: MYCOPHENOLIC ACID
  3. PREDNISONE. [Concomitant]
     Active Substance: PREDNISONE
  4. CIDOFOVIR. [Concomitant]
     Active Substance: CIDOFOVIR
  5. GENERIC IVIG [Suspect]
     Active Substance: HUMAN IMMUNOGLOBULIN G
     Indication: NEPHROPATHY
     Route: 042

REACTIONS (3)
  - Acute respiratory failure [Unknown]
  - Off label use [Unknown]
  - Therapy partial responder [Unknown]
